FAERS Safety Report 23472045 (Version 5)
Quarter: 2024Q4

REPORT INFORMATION
  Report Type: Report from Study
  Country: US (occurrence: US)
  Receive Date: 20240202
  Receipt Date: 20241212
  Transmission Date: 20250114
  Serious: Yes (Hospitalization)
  Sender: AMNEAL
  Company Number: US-AMNEAL PHARMACEUTICALS-2023-AMRX-04344

PATIENT
  Age: 82 Year
  Sex: Female

DRUGS (5)
  1. CARBIDOPA\LEVODOPA [Suspect]
     Active Substance: CARBIDOPA\LEVODOPA
     Indication: Product used for unknown indication
     Dosage: 3 CAPSULES, 3 /DAY
     Route: 048
  2. CARBIDOPA\LEVODOPA [Suspect]
     Active Substance: CARBIDOPA\LEVODOPA
     Dosage: QID
     Route: 048
  3. CARBIDOPA\LEVODOPA [Suspect]
     Active Substance: CARBIDOPA\LEVODOPA
     Dosage: 48.75-195MG TO TAKE 4 CAPSULES BY MOUTH THREE TIMES A DAY
     Route: 048
     Dates: start: 20241031
  4. CARBIDOPA\LEVODOPA [Suspect]
     Active Substance: CARBIDOPA\LEVODOPA
     Dosage: UNK, DOSE INCREASED
     Route: 048
  5. CARBIDOPA\LEVODOPA [Suspect]
     Active Substance: CARBIDOPA\LEVODOPA
     Dosage: UNK, DOSE DECREASED
     Route: 048

REACTIONS (17)
  - Faeces discoloured [Unknown]
  - Back pain [Unknown]
  - Constipation [Unknown]
  - Chromaturia [Unknown]
  - Joint swelling [Unknown]
  - Pain [Unknown]
  - Feeling abnormal [Unknown]
  - Confusional state [Unknown]
  - Peripheral swelling [Unknown]
  - Sleep disorder due to general medical condition, insomnia type [Unknown]
  - Bruxism [Not Recovered/Not Resolved]
  - Myalgia [Unknown]
  - Dysphonia [None]
  - Abdominal discomfort [Not Recovered/Not Resolved]
  - Muscle strain [Unknown]
  - Headache [Not Recovered/Not Resolved]
  - Dyskinesia [Not Recovered/Not Resolved]

NARRATIVE: CASE EVENT DATE: 20231205
